FAERS Safety Report 6153796-5 (Version None)
Quarter: 2009Q2

REPORT INFORMATION
  Report Type: 
  Country: None (occurrence: None)
  Receive Date: 20090414
  Receipt Date: 20090402
  Transmission Date: 20091009
  Serious: Yes (Life-Threatening, Hospitalization)
  Sender: FDA-Public Use
  Company Number: GB-RANBAXY-2007RR-05239

PATIENT
  Age: 54 Year
  Sex: Male

DRUGS (3)
  1. SIMVASTATIN [Suspect]
     Dosage: 600 MG, UNK
     Route: 048
  2. RAMIPRIL [Suspect]
     Indication: HYPERTENSION
     Dosage: 300 MG, UNK
     Route: 048
  3. RANITIDINE [Suspect]
     Dosage: 4500 MG, UNK
     Route: 048

REACTIONS (3)
  - BLOOD PRESSURE DECREASED [None]
  - HAEMODYNAMIC INSTABILITY [None]
  - OVERDOSE [None]
